FAERS Safety Report 7202270-3 (Version None)
Quarter: 2010Q4

REPORT INFORMATION
  Report Type: 
  Country: None (occurrence: None)
  Receive Date: 20101229
  Receipt Date: 20101220
  Transmission Date: 20110411
  Serious: Yes (Disabling, Other)
  Sender: FDA-Public Use
  Company Number: PHEH2010US01802

PATIENT
  Sex: Female

DRUGS (6)
  1. EXTAVIA [Suspect]
     Indication: MULTIPLE SCLEROSIS
     Dosage: 0.25 MG, QOD
     Route: 058
     Dates: start: 20100128
  2. IBUPROFEN [Concomitant]
     Dosage: 600 MG, PRN
  3. NEURONTIN [Concomitant]
     Dosage: 400 MG, TID
  4. GOODYS POWDERS [Concomitant]
     Dosage: 1 PACKET, Q6 PRN
  5. M.V.I. [Concomitant]
     Dosage: 1 DF, QD
  6. VITAMIN B-12 [Concomitant]
     Dosage: 2500 UNITS, QD

REACTIONS (8)
  - ALOPECIA [None]
  - DYSPHAGIA [None]
  - INFLUENZA LIKE ILLNESS [None]
  - INJECTION SITE PAIN [None]
  - KNEE OPERATION [None]
  - LIVER FUNCTION TEST ABNORMAL [None]
  - MENISCUS LESION [None]
  - MYALGIA [None]
